FAERS Safety Report 5255078-2 (Version None)
Quarter: 2007Q1

REPORT INFORMATION
  Report Type: 
  Country: None (occurrence: None)
  Receive Date: 20070228
  Receipt Date: 20070219
  Transmission Date: 20070707
  Serious: Yes (Hospitalization)
  Sender: FDA-Public Use
  Company Number: 2007PV030294

PATIENT
  Age: 64 Year
  Sex: Female
  Weight: 90.7194 kg

DRUGS (7)
  1. BYETTA [Suspect]
     Indication: DIABETES MELLITUS NON-INSULIN-DEPENDENT
     Dosage: 10 MCG; BID; SC
     Route: 058
     Dates: start: 20060201
  2. METFORMIN HCL [Concomitant]
  3. UNSPECIFIED DIURETIC [Concomitant]
  4. LEVOTHYROXINE SODIUM [Concomitant]
  5. PREVACID [Concomitant]
  6. ATACAND [Concomitant]
  7. DILTIAZEM [Concomitant]

REACTIONS (4)
  - ARRHYTHMIA [None]
  - BLOOD GLUCOSE DECREASED [None]
  - HEART RATE INCREASED [None]
  - IRRITABILITY [None]
